FAERS Safety Report 25368876 (Version 3)
Quarter: 2025Q3

REPORT INFORMATION
  Report Type: Spontaneous
  Country: US (occurrence: US)
  Receive Date: 20250528
  Receipt Date: 20250710
  Transmission Date: 20251021
  Serious: Yes (Hospitalization)
  Sender: ROCHE
  Company Number: US-ROCHE-10000291526

PATIENT
  Sex: Female

DRUGS (7)
  1. ACTEMRA [Suspect]
     Active Substance: TOCILIZUMAB
     Indication: Rheumatoid arthritis
     Dosage: STRENGTH:400MG/20ML, ONGOING
     Route: 042
     Dates: start: 202501
  2. BANOPHEN [Concomitant]
     Active Substance: DIPHENHYDRAMINE HYDROCHLORIDE
  3. SODIUM CHLORIDE [Concomitant]
     Active Substance: SODIUM CHLORIDE
  4. DIPHENHYDRAMINE [Concomitant]
     Active Substance: DIPHENHYDRAMINE
  5. BACTERIOSTATIC WATER MDV [Concomitant]
  6. EPINEPHRINE AUTOINJ [Concomitant]
  7. METHYLPRED SODIUM SUCCINATE [Concomitant]

REACTIONS (3)
  - Impaired healing [Unknown]
  - Wound infection [Unknown]
  - Blood creatinine increased [Unknown]
